FAERS Safety Report 4759059-4 (Version None)
Quarter: 2005Q3

REPORT INFORMATION
  Report Type: 
  Country: None (occurrence: None)
  Receive Date: 20050826
  Receipt Date: 20050812
  Transmission Date: 20060218
  Serious: Yes (Hospitalization)
  Sender: FDA-Public Use
  Company Number: 172045

PATIENT
  Age: 54 Year
  Sex: Female

DRUGS (1)
  1. AVONEX [Suspect]
     Indication: MULTIPLE SCLEROSIS
     Dosage: IM
     Route: 030
     Dates: start: 20030324, end: 20030413

REACTIONS (5)
  - BURNING SENSATION [None]
  - HEADACHE [None]
  - MOBILITY DECREASED [None]
  - PRURITUS [None]
  - TREMOR [None]
